FAERS Safety Report 10481158 (Version 2)
Quarter: 2014Q3

REPORT INFORMATION
  Report Type: Spontaneous
  Country: IT (occurrence: IT)
  Receive Date: 20140929
  Receipt Date: 20140929
  Transmission Date: 20150326
  Serious: Yes (Other)
  Sender: FDA-Public Use
  Company Number: IT-ROCHE-1452794

PATIENT
  Sex: Male

DRUGS (3)
  1. CAPECITABINE [Suspect]
     Active Substance: CAPECITABINE
     Indication: ADENOCARCINOMA GASTRIC
     Route: 048
     Dates: start: 20140704, end: 20140717
  2. DOCETAXEL [Concomitant]
     Active Substance: DOCETAXEL
     Route: 042
     Dates: start: 20140704, end: 20140704
  3. OXALIPLATINO [Concomitant]
     Active Substance: OXALIPLATIN
     Route: 042
     Dates: start: 20140704, end: 20140704

REACTIONS (2)
  - Ischaemia [Recovered/Resolved]
  - Ventricular dysfunction [Recovered/Resolved]

NARRATIVE: CASE EVENT DATE: 20140710
